FAERS Safety Report 24378921 (Version 1)
Quarter: 2024Q3

REPORT INFORMATION
  Report Type: Report from Study
  Country: GR (occurrence: GR)
  Receive Date: 20240930
  Receipt Date: 20240930
  Transmission Date: 20241017
  Serious: Yes (Death, Life-Threatening, Hospitalization, Disabling, Other)
  Sender: ABBVIE
  Company Number: GR-ABBVIE-5943376

PATIENT
  Age: 75 Year
  Sex: Female
  Weight: 85 kg

DRUGS (5)
  1. VENETOCLAX [Suspect]
     Active Substance: VENETOCLAX
     Indication: Acute myeloid leukaemia
     Route: 048
     Dates: start: 20230617, end: 20230618
  2. AMLODIPINE [Concomitant]
     Active Substance: AMLODIPINE BESYLATE
     Indication: Hypertension
     Route: 048
     Dates: end: 20230627
  3. ASPIRIN [Concomitant]
     Active Substance: ASPIRIN
     Indication: Coronary artery disease
     Route: 048
     Dates: end: 20230620
  4. METOPROLOL [Concomitant]
     Active Substance: METOPROLOL
     Indication: Coronary artery disease
     Route: 048
     Dates: end: 20230629
  5. VIDAZA [Suspect]
     Active Substance: AZACITIDINE
     Indication: Acute myeloid leukaemia

REACTIONS (7)
  - Tumour lysis syndrome [Fatal]
  - Blood uric acid increased [Unknown]
  - Blood potassium increased [Unknown]
  - Blood lactate dehydrogenase increased [Unknown]
  - Cardiac arrest [Fatal]
  - Renal failure [Fatal]
  - Pulmonary oedema [Fatal]

NARRATIVE: CASE EVENT DATE: 20230618
